FAERS Safety Report 15075027 (Version 2)
Quarter: 2023Q4

REPORT INFORMATION
  Report Type: Spontaneous
  Country: US (occurrence: US)
  Receive Date: 20180627
  Receipt Date: 20231109
  Transmission Date: 20240110
  Serious: No
  Sender: FDA-Public Use
  Company Number: US-SAOL THERAPEUTICS-2017SAO01678

PATIENT
  Sex: Male
  Weight: 77.98 kg

DRUGS (2)
  1. BACLOFEN [Suspect]
     Active Substance: BACLOFEN
     Dosage: 12.831 ?G, \DAY
     Route: 037
  2. FENTANYL [Suspect]
     Active Substance: FENTANYL\FENTANYL CITRATE
     Dosage: 50.04 ?G, \DAY
     Route: 037

REACTIONS (3)
  - Pain [Recovered/Resolved]
  - Device extrusion [Recovered/Resolved]
  - Weight decreased [Unknown]

NARRATIVE: CASE EVENT DATE: 20160101
